FAERS Safety Report 24302646 (Version 1)
Quarter: 2024Q3

REPORT INFORMATION
  Report Type: Spontaneous
  Country: CN (occurrence: CN)
  Receive Date: 20240910
  Receipt Date: 20240910
  Transmission Date: 20241017
  Serious: Yes (Other)
  Sender: FRESENIUS KABI
  Company Number: CN-FreseniusKabi-FK202413391

PATIENT
  Age: 93 Year
  Sex: Female
  Weight: 50 kg

DRUGS (3)
  1. SMOFLIPID [Suspect]
     Active Substance: FISH OIL\MEDIUM-CHAIN TRIGLYCERIDES\OLIVE OIL\SOYBEAN OIL
     Indication: Nutritional supplementation
     Dosage: DOSAGE FORM: INJECTION?ROA: INTRAVENOUS DRIP (IVD)
     Dates: start: 20240830, end: 20240831
  2. AMINO ACIDS, SOURCE UNSPECIFIED [Suspect]
     Active Substance: AMINO ACIDS, SOURCE UNSPECIFIED
     Indication: Nutritional supplementation
     Dosage: DOSAGE FORM: INJECTION?ROA: INTRAVENOUS DRIP (IVD)
     Dates: start: 20240830, end: 20240831
  3. DEXTROSE [Concomitant]
     Active Substance: DEXTROSE\DEXTROSE MONOHYDRATE
     Indication: Product used for unknown indication
     Dosage: DOSAGE FORM: INJECTION?ROA: INTRAVENOUS DRIP (IVD)
     Dates: start: 20240830, end: 20240831

REACTIONS (3)
  - Pyrexia [Recovering/Resolving]
  - Temperature intolerance [Recovered/Resolved]
  - Chills [Recovered/Resolved]

NARRATIVE: CASE EVENT DATE: 20240831
